FAERS Safety Report 5416971-0 (Version None)
Quarter: 2007Q3

REPORT INFORMATION
  Report Type: 
  Country: None (occurrence: None)
  Receive Date: 20070816
  Receipt Date: 20070807
  Transmission Date: 20080115
  Serious: Yes (Other)
  Sender: FDA-Public Use
  Company Number: FR-PFIZER INC-2007066027

PATIENT
  Age: 44 Year
  Sex: Male

DRUGS (1)
  1. ARTHROTEC [Suspect]
     Indication: TENDONITIS

REACTIONS (1)
  - MUSCLE STRAIN [None]
